FAERS Safety Report 7156399-9 (Version None)
Quarter: 2010Q4

REPORT INFORMATION
  Report Type: 
  Country: None (occurrence: None)
  Receive Date: 20101214
  Receipt Date: 20101201
  Transmission Date: 20110411
  Serious: Yes (Other)
  Sender: FDA-Public Use
  Company Number: CA-ROCHE-745723

PATIENT
  Sex: Female

DRUGS (5)
  1. TRASTUZUMAB [Suspect]
     Indication: OVARIAN CANCER
     Dosage: FORM: INFUSION
     Route: 042
     Dates: start: 20100518, end: 20101014
  2. TYLENOL (CAPLET) [Concomitant]
     Dosage: AS NEEDED
  3. MONOPRIL [Concomitant]
  4. LIPITOR [Concomitant]
  5. PARIET [Concomitant]

REACTIONS (1)
  - HYPOAESTHESIA [None]
